FAERS Safety Report 12364171 (Version 3)
Quarter: 2017Q1

REPORT INFORMATION
  Report Type: Report from Study
  Country: US (occurrence: US)
  Receive Date: 20160512
  Receipt Date: 20170105
  Transmission Date: 20170428
  Serious: No
  Sender: FDA-Public Use
  Company Number: PHEH2016US011846

PATIENT
  Sex: Male

DRUGS (4)
  1. ILARIS [Suspect]
     Active Substance: CANAKINUMAB
     Dosage: 90 MG, Q 4 WEEKS
     Route: 058
     Dates: start: 20160406
  2. ILARIS [Suspect]
     Active Substance: CANAKINUMAB
     Dosage: UNK,  Q 4 WEEKS
     Route: 058
     Dates: start: 20160713
  3. ILARIS [Suspect]
     Active Substance: CANAKINUMAB
     Indication: JUVENILE IDIOPATHIC ARTHRITIS
     Dosage: 90 MG, Q 4 WEEKS
     Route: 058
  4. ILARIS [Suspect]
     Active Substance: CANAKINUMAB
     Dosage: UNK, EVERY 4 WEEKS
     Route: 065
     Dates: start: 20161201

REACTIONS (1)
  - Inappropriate schedule of drug administration [Unknown]
